FAERS Safety Report 9103994 (Version 1)
Quarter: 2013Q1

REPORT INFORMATION
  Report Type: Spontaneous
  Country: US (occurrence: US)
  Receive Date: 20130219
  Receipt Date: 20130219
  Transmission Date: 20140127
  Serious: Yes (Other)
  Sender: FDA-Public Use
  Company Number: US-JNJFOC-20130207320

PATIENT
  Age: 59 Year
  Sex: Male

DRUGS (7)
  1. SIMPONI [Suspect]
     Indication: RHEUMATOID ARTHRITIS
     Route: 058
     Dates: start: 20100521
  2. SIMPONI [Suspect]
     Indication: RHEUMATOID ARTHRITIS
     Route: 058
     Dates: start: 201101
  3. PLAQUENIL [Concomitant]
     Route: 065
  4. VIT D [Concomitant]
     Route: 065
  5. LISINOPRIL [Concomitant]
     Route: 065
  6. TRAMADOL [Concomitant]
     Indication: PAIN
     Route: 065
  7. SEROQUEL [Concomitant]
     Route: 065

REACTIONS (1)
  - Prostate cancer [Unknown]
